FAERS Safety Report 25133709 (Version 2)
Quarter: 2025Q3

REPORT INFORMATION
  Report Type: Spontaneous
  Country: CA (occurrence: CA)
  Receive Date: 20250328
  Receipt Date: 20250704
  Transmission Date: 20251020
  Serious: Yes (Other)
  Sender: ABBVIE
  Company Number: CA-LUNDBECK-DKLU4012378

PATIENT
  Age: 57 Year

DRUGS (10)
  1. CITALOPRAM HYDROBROMIDE [Suspect]
     Active Substance: CITALOPRAM HYDROBROMIDE
     Indication: Product used for unknown indication
     Route: 048
  2. CLOZAPINE [Suspect]
     Active Substance: CLOZAPINE
     Indication: Psychotic disorder
     Dosage: 225 MILLIGRAM
     Route: 065
  3. CLOZAPINE [Suspect]
     Active Substance: CLOZAPINE
     Indication: Psychotic disorder
     Dosage: 350 MILLIGRAM
     Route: 065
  4. CLOZAPINE [Suspect]
     Active Substance: CLOZAPINE
     Indication: Psychotic disorder
     Dosage: 375 MILLIGRAM
     Route: 065
  5. LORAZEPAM [Concomitant]
     Active Substance: LORAZEPAM
     Indication: Agitation
     Dosage: 1 MILLIGRAM
     Route: 060
  6. MIRTAZAPINE [Concomitant]
     Active Substance: MIRTAZAPINE
     Indication: Affective disorder
     Dosage: 30 MILLIGRAM
     Route: 048
  7. LOXAPINE [Concomitant]
     Active Substance: LOXAPINE
     Indication: Agitation
     Dosage: 15 MILLIGRAM
     Route: 048
  8. LOXAPINE [Concomitant]
     Active Substance: LOXAPINE
     Indication: Agitation
     Dosage: 10 MILLIGRAM
     Route: 048
  9. LOXAPINE [Concomitant]
     Active Substance: LOXAPINE
     Indication: Agitation
     Dosage: 10 MILLIGRAM
     Route: 048
  10. ATROPINE [Concomitant]
     Active Substance: ATROPINE
     Indication: Drooling
     Dosage: 1 DROP (1/12 MILLILITRE)
     Route: 060

REACTIONS (8)
  - Disease complication [Unknown]
  - Fall [Unknown]
  - Anaemia [Not Recovered/Not Resolved]
  - Anaemia [Not Recovered/Not Resolved]
  - Electrocardiogram QT prolonged [Unknown]
  - Asthenia [Not Recovered/Not Resolved]
  - Asthenia [Unknown]
  - Electrocardiogram QT prolonged [Not Recovered/Not Resolved]
